FAERS Safety Report 9802850 (Version 1)
Quarter: 2014Q1

REPORT INFORMATION
  Report Type: Spontaneous
  Country: US (occurrence: None)
  Receive Date: 20140106
  Receipt Date: 20140106
  Transmission Date: 20141002
  Serious: Yes (Life-Threatening, Hospitalization, Disabling)
  Sender: FDA-Public Use
  Company Number: None

PATIENT
  Age: 81 Year
  Sex: Female
  Weight: 83.92 kg

DRUGS (1)
  1. XARELTO [Suspect]
     Indication: PULMONARY THROMBOSIS
     Dosage: 2 PILLS/DAY, THEN 1/DAY TWICE DAILY TAKEN BY MOUTH
     Route: 048
     Dates: start: 20131123, end: 20131225

REACTIONS (2)
  - Pain in extremity [None]
  - Skin discolouration [None]
